FAERS Safety Report 13757625 (Version 5)
Quarter: 2018Q2

REPORT INFORMATION
  Report Type: Report from Study
  Country: DE (occurrence: DE)
  Receive Date: 20170717
  Receipt Date: 20180516
  Transmission Date: 20180711
  Serious: Yes (Hospitalization)
  Sender: FDA-Public Use
  Company Number: DE-ROCHE-1933539

PATIENT
  Age: 65 Year
  Sex: Female
  Weight: 116 kg

DRUGS (4)
  1. VEMURAFENIB. [Suspect]
     Active Substance: VEMURAFENIB
     Route: 048
     Dates: start: 20170524, end: 20170606
  2. VEMURAFENIB. [Suspect]
     Active Substance: VEMURAFENIB
     Indication: METASTATIC MALIGNANT MELANOMA
     Dosage: DATE OF MOST RECENT DOSE PRIOR TO EVENT: 09/MAY/2017?DATE OF MOST RECENT DOSE PRIOR TO EVENT: 06/JUL
     Route: 048
     Dates: start: 20170424, end: 20170509
  3. COBIMETINIB. [Suspect]
     Active Substance: COBIMETINIB
     Indication: METASTATIC MALIGNANT MELANOMA
     Dosage: DATE OF MOST RECENT DOSE PRIOR TO EVENT: 08/MAY/2017?DATE OF MOST RECENT DOSE PRIOR TO EVENT: 06/JUL
     Route: 048
     Dates: start: 20170424, end: 20170509
  4. COBIMETINIB. [Suspect]
     Active Substance: COBIMETINIB
     Route: 048
     Dates: start: 20170524, end: 20170706

REACTIONS (4)
  - Syncope [Recovered/Resolved]
  - Rash maculo-papular [Recovered/Resolved]
  - Hyponatraemia [Recovered/Resolved]
  - Large intestinal haemorrhage [Recovered/Resolved]

NARRATIVE: CASE EVENT DATE: 20170506
